FAERS Safety Report 11718008 (Version 1)
Quarter: 2015Q4

REPORT INFORMATION
  Report Type: Spontaneous
  Country: IT (occurrence: IT)
  Receive Date: 20151110
  Receipt Date: 20151110
  Transmission Date: 20160304
  Serious: Yes (Other)
  Sender: FDA-Public Use
  Company Number: IT-ACCORD-035360

PATIENT
  Age: 65 Year
  Sex: Female

DRUGS (2)
  1. NO DRUG NAME [Concomitant]
     Indication: SLEEP DISORDER
  2. QUETIAPINE [Suspect]
     Active Substance: QUETIAPINE
     Indication: MAJOR DEPRESSION
     Dosage: EXTENDED RELEASE

REACTIONS (1)
  - Lip oedema [Recovered/Resolved]
